FAERS Safety Report 6093532-4 (Version None)
Quarter: 2009Q1

REPORT INFORMATION
  Report Type: 
  Country: None (occurrence: None)
  Receive Date: 20090224
  Receipt Date: 20090213
  Transmission Date: 20090719
  Serious: Yes (Other)
  Sender: FDA-Public Use
  Company Number: ENTC2009-0046

PATIENT
  Sex: Male

DRUGS (1)
  1. STALEVO 100 [Suspect]
     Indication: PARKINSON'S DISEASE
     Dosage: ORAL
     Route: 048

REACTIONS (2)
  - CEREBROVASCULAR ACCIDENT [None]
  - RESTLESS LEGS SYNDROME [None]
